FAERS Safety Report 22162848 (Version 1)
Quarter: 2023Q1

REPORT INFORMATION
  Report Type: Spontaneous
  Country: CN (occurrence: None)
  Receive Date: 20230331
  Receipt Date: 20230331
  Transmission Date: 20230418
  Serious: Yes (Other)
  Sender: FDA-Public Use
  Company Number: CN-ROCHE-3319555

PATIENT
  Age: 35 Year
  Sex: Male

DRUGS (5)
  1. GAZYVA [Suspect]
     Active Substance: OBINUTUZUMAB
     Indication: Splenic marginal zone lymphoma
     Route: 065
     Dates: start: 20220712
  2. CYCLOPHOSPHAMIDE [Concomitant]
     Active Substance: CYCLOPHOSPHAMIDE
     Indication: Splenic marginal zone lymphoma
     Dosage: G-CHOP FOR 6 CYCLES
     Dates: start: 202207, end: 202212
  3. DOXORUBICIN [Concomitant]
     Active Substance: DOXORUBICIN
     Indication: Splenic marginal zone lymphoma
     Dosage: G-CHOP FOR 6 CYCLES
     Dates: start: 202207, end: 202212
  4. VINCRISTINE [Concomitant]
     Active Substance: VINCRISTINE
     Indication: Splenic marginal zone lymphoma
     Dosage: G-CHOP FOR 6 CYCLES
     Dates: start: 202207, end: 202212
  5. PREDNISONE [Concomitant]
     Active Substance: PREDNISONE
     Indication: Splenic marginal zone lymphoma
     Dosage: G-CHOP FOR 6 CYCLES
     Dates: start: 202207, end: 202212

REACTIONS (2)
  - Off label use [Unknown]
  - Tumour lysis syndrome [Recovering/Resolving]
